FAERS Safety Report 5173282-9 (Version None)
Quarter: 2006Q4

REPORT INFORMATION
  Report Type: 
  Country: None (occurrence: None)
  Receive Date: 20061206
  Receipt Date: 20061127
  Transmission Date: 20070319
  Serious: Yes (Death)
  Sender: FDA-Public Use
  Company Number: 2006SP004167

PATIENT
  Age: 45 Year
  Sex: Male
  Weight: 92.5338 kg

DRUGS (2)
  1. LUNESTA [Suspect]
     Indication: INSOMNIA
     Dosage: ORAL
     Route: 048
     Dates: start: 20061103, end: 20061116
  2. NEURONTIN [Suspect]

REACTIONS (6)
  - COMPLETED SUICIDE [None]
  - CONDITION AGGRAVATED [None]
  - DEPRESSION [None]
  - LACERATION [None]
  - OVERDOSE [None]
  - SUICIDAL IDEATION [None]
